FAERS Safety Report 8274795-3 (Version None)
Quarter: 2012Q2

REPORT INFORMATION
  Report Type: 
  Country: None (occurrence: None)
  Receive Date: 20120411
  Receipt Date: 20120402
  Transmission Date: 20120825
  Serious: Yes (Other)
  Sender: FDA-Public Use
  Company Number: US-ASTRAZENECA-2012SE21776

PATIENT
  Age: 47 Year
  Sex: Male

DRUGS (8)
  1. NEXIUM [Suspect]
     Route: 048
     Dates: start: 20110101, end: 20120301
  2. LORTAB [Concomitant]
  3. FLOMAX [Concomitant]
  4. SOMA [Concomitant]
  5. BENICAR [Concomitant]
  6. NEXIUM [Suspect]
     Indication: GASTROOESOPHAGEAL REFLUX DISEASE
     Route: 048
     Dates: start: 20040101, end: 20110101
  7. NEXIUM [Suspect]
     Route: 048
     Dates: start: 20110101, end: 20110101
  8. OTC ALLERGY MEDS [Concomitant]
     Indication: HYPERSENSITIVITY

REACTIONS (6)
  - CHOKING [None]
  - INTENTIONAL DRUG MISUSE [None]
  - BACK INJURY [None]
  - GASTROOESOPHAGEAL REFLUX DISEASE [None]
  - MIDDLE INSOMNIA [None]
  - BURN OESOPHAGEAL [None]
